FAERS Safety Report 23675908 (Version 2)
Quarter: 2024Q2

REPORT INFORMATION
  Report Type: Spontaneous
  Country: JP (occurrence: JP)
  Receive Date: 20240327
  Receipt Date: 20240426
  Transmission Date: 20240716
  Serious: Yes (Other)
  Sender: FDA-Public Use
  Company Number: JP-JNJFOC-20240360346

PATIENT

DRUGS (2)
  1. IMBRUVICA [Suspect]
     Active Substance: IBRUTINIB
     Indication: Chronic graft versus host disease
     Dosage: DOSE UNKNOWN
     Route: 048
  2. VORICONAZOLE [Concomitant]
     Active Substance: VORICONAZOLE
     Indication: Product used for unknown indication
     Dosage: DOSE UNKNOWN
     Route: 065

REACTIONS (7)
  - Pneumomediastinum [Unknown]
  - Fatigue [Unknown]
  - Interstitial lung disease [Unknown]
  - Infection [Unknown]
  - Thrombocytopenia [Unknown]
  - Drug ineffective [Unknown]
  - Neutropenia [Unknown]
